FAERS Safety Report 8312427-6 (Version None)
Quarter: 2012Q2

REPORT INFORMATION
  Report Type: 
  Country: None (occurrence: None)
  Receive Date: 20120425
  Receipt Date: 20120416
  Transmission Date: 20120825
  Serious: Yes (Other)
  Sender: FDA-Public Use
  Company Number: US-ELI_LILLY_AND_COMPANY-US201005006739

PATIENT
  Sex: Female

DRUGS (2)
  1. FORTEO [Suspect]
  2. FORTEO [Suspect]
     Dosage: UNK, UNKNOWN

REACTIONS (7)
  - FEMUR FRACTURE [None]
  - HERPES ZOSTER [None]
  - FALL [None]
  - FATIGUE [None]
  - PAIN [None]
  - FOOT DEFORMITY [None]
  - OSTEOARTHRITIS [None]
